FAERS Safety Report 25184022 (Version 3)
Quarter: 2025Q2

REPORT INFORMATION
  Report Type: Spontaneous
  Country: US (occurrence: US)
  Receive Date: 20250410
  Receipt Date: 20250528
  Transmission Date: 20250717
  Serious: No
  Sender: PFIZER
  Company Number: US-PFIZER INC-202500074324

PATIENT
  Age: 59 Year
  Sex: Female

DRUGS (2)
  1. IBRANCE [Suspect]
     Active Substance: PALBOCICLIB
     Dates: start: 202503
  2. IBRANCE [Suspect]
     Active Substance: PALBOCICLIB

REACTIONS (3)
  - White blood cell count decreased [Recovering/Resolving]
  - Pyrexia [Unknown]
  - Hot flush [Unknown]
